FAERS Safety Report 23396182 (Version 7)
Quarter: 2024Q1

REPORT INFORMATION
  Report Type: Spontaneous
  Country: BR (occurrence: BR)
  Receive Date: 20240112
  Receipt Date: 20240326
  Transmission Date: 20240410
  Serious: Yes (Other)
  Sender: FDA-Public Use
  Company Number: BR-002147023-NVSC2024BR006555

PATIENT
  Age: 18 Year
  Sex: Female
  Weight: 58 kg

DRUGS (6)
  1. TEGRETOL [Suspect]
     Active Substance: CARBAMAZEPINE
     Indication: Epilepsy
     Dosage: UNK (FROM 1 TO 5 TIMES A DAY)
     Route: 048
     Dates: start: 2005
  2. TEGRETOL XR [Suspect]
     Active Substance: CARBAMAZEPINE
     Indication: Epilepsy
     Dosage: 400 MG
     Route: 065
     Dates: start: 2006
  3. CLONAZEPAM [Concomitant]
     Active Substance: CLONAZEPAM
     Indication: Epilepsy
     Dosage: 2 MG, QD (1 TABLET AT NIGHT)
     Route: 065
     Dates: start: 2005
  4. BARBEXACLONE [Concomitant]
     Active Substance: BARBEXACLONE
     Indication: Epilepsy
     Dosage: 1 DOSAGE FORM, QD (1 TABLET AT NIGHT STARTED IN 1999 OR 2000)
     Route: 065
     Dates: end: 2023
  5. DEPAKENE [Concomitant]
     Active Substance: VALPROIC ACID
     Indication: Epilepsy
     Dosage: 1 DOSAGE FORM, QD (1 TABLET PER DAY)
     Route: 065
  6. RIVOTRIL [Concomitant]
     Active Substance: CLONAZEPAM
     Indication: Product used for unknown indication
     Dosage: 02 MG
     Route: 065

REACTIONS (5)
  - Seizure [Recovered/Resolved]
  - Somnolence [Recovered/Resolved]
  - Distractibility [Recovered/Resolved]
  - Arthropathy [Not Recovered/Not Resolved]
  - Product availability issue [Unknown]

NARRATIVE: CASE EVENT DATE: 20060201
